FAERS Safety Report 8946896 (Version 1)
Quarter: 2012Q4

REPORT INFORMATION
  Report Type: 
  Country: FR (occurrence: FR)
  Receive Date: 20121205
  Receipt Date: 20121205
  Transmission Date: 20130627
  Serious: Yes (Life-Threatening, Hospitalization)
  Sender: FDA-Public Use
  Company Number: FR-GLAXOSMITHKLINE-B0848206A

PATIENT
  Age: 73 Year
  Sex: Male
  Weight: 68 kg

DRUGS (3)
  1. ARIXTRA [Suspect]
     Indication: DEEP VEIN THROMBOSIS
     Dosage: 7.5MG Per day
     Route: 058
     Dates: start: 20121029, end: 20121112
  2. COUMADINE [Concomitant]
     Indication: DEEP VEIN THROMBOSIS
     Dosage: 4MG Per day
     Route: 048
     Dates: start: 20121029, end: 20121105
  3. OFLOCET [Concomitant]
     Indication: URINARY TRACT INFECTION
     Dosage: 400MG Per day
     Route: 048
     Dates: start: 20121101

REACTIONS (3)
  - Muscle haemorrhage [Recovering/Resolving]
  - Anaemia [Recovering/Resolving]
  - Myositis [Recovering/Resolving]
